FAERS Safety Report 23524645 (Version 1)
Quarter: 2024Q1

REPORT INFORMATION
  Report Type: 
  Country: None (occurrence: None)
  Receive Date: 20240215
  Receipt Date: 20240215
  Transmission Date: 20240410
  Serious: No
  Sender: FDA-Public Use
  Company Number: JP-CHUGAI-2024003458

PATIENT

DRUGS (2)
  1. TECENTRIQ [Suspect]
     Active Substance: ATEZOLIZUMAB
  2. AVASTIN [Suspect]
     Active Substance: BEVACIZUMAB

REACTIONS (4)
  - Hepatic haemorrhage [None]
  - Ascites [None]
  - Anaemia [None]
  - Nausea [None]
